FAERS Safety Report 22224363 (Version 1)
Quarter: 2023Q2

REPORT INFORMATION
  Report Type: Spontaneous
  Country: US (occurrence: None)
  Receive Date: 20230417
  Receipt Date: 20230417
  Transmission Date: 20230722
  Serious: Yes (Other)
  Sender: FDA-Public Use
  Company Number: None

PATIENT
  Age: 70 Year
  Sex: Female
  Weight: 56.25 kg

DRUGS (6)
  1. RECLAST [Suspect]
     Active Substance: ZOLEDRONIC ACID
     Indication: Drug therapy
     Dates: start: 20230410, end: 20230410
  2. LEVOTHYROXINE [Concomitant]
     Active Substance: LEVOTHYROXINE
  3. ANASTROZOLE [Concomitant]
     Active Substance: ANASTROZOLE
  4. VALIUM [Concomitant]
     Active Substance: DIAZEPAM
  5. CALCIUM [Concomitant]
     Active Substance: CALCIUM
  6. VITAMIN D3 [Concomitant]
     Active Substance: CHOLECALCIFEROL

REACTIONS (9)
  - Chest discomfort [None]
  - Pain [None]
  - Chills [None]
  - Nausea [None]
  - Myalgia [None]
  - Pyrexia [None]
  - Musculoskeletal stiffness [None]
  - Somnolence [None]
  - Gastrooesophageal reflux disease [None]

NARRATIVE: CASE EVENT DATE: 20230410
